FAERS Safety Report 9726071 (Version 5)
Quarter: 2014Q2

REPORT INFORMATION
  Report Type: Report from Study
  Country: US (occurrence: US)
  Receive Date: 20131203
  Receipt Date: 20140513
  Transmission Date: 20141212
  Serious: Yes (Death, Hospitalization)
  Sender: FDA-Public Use
  Company Number: US-ASTELLAS-2013EU009426

PATIENT
  Age: 84 Year
  Sex: Male

DRUGS (21)
  1. ENZALUTAMIDE [Suspect]
     Indication: PROSTATE CANCER METASTATIC
     Route: 048
     Dates: start: 20120117, end: 20131022
  2. ENZALUTAMIDE [Suspect]
     Route: 048
     Dates: start: 20131028
  3. ENZALUTAMIDE [Suspect]
  4. REGLAN                             /00041901/ [Concomitant]
     Indication: DYSPEPSIA
     Route: 048
     Dates: start: 20130703
  5. TERAZOSIN [Concomitant]
     Indication: HYPERTENSION
     Route: 048
     Dates: start: 2006
  6. WARFARIN [Concomitant]
     Indication: ANTICOAGULANT THERAPY
     Route: 048
     Dates: start: 1998, end: 20130716
  7. ASPIRIN [Concomitant]
     Indication: PROPHYLAXIS
     Route: 048
     Dates: start: 2008
  8. ERGOCALCIFEROL [Concomitant]
     Indication: PROPHYLAXIS
     Route: 048
     Dates: start: 2008
  9. VITAMIN C                          /00008001/ [Concomitant]
     Indication: NASOPHARYNGITIS
     Route: 048
     Dates: start: 2008
  10. COD LIVER OIL [Concomitant]
     Indication: NUTRITIONAL SUPPLEMENTATION
     Route: 048
     Dates: start: 20110920
  11. ATENOLOL [Concomitant]
     Indication: HYPERTENSION
     Route: 048
     Dates: start: 20130703
  12. MS CONTIN [Concomitant]
     Indication: PAIN
     Route: 048
     Dates: start: 20130702
  13. ALEVE [Concomitant]
     Indication: PAIN
     Route: 048
     Dates: start: 20130702
  14. IBUPROFEN [Concomitant]
     Indication: PAIN
     Route: 048
     Dates: start: 20130528
  15. BUMETANIDE [Concomitant]
     Indication: OEDEMA
     Route: 048
     Dates: start: 20130703
  16. POTASSIUM CHLORIDE [Concomitant]
     Indication: ROUTINE HEALTH MAINTENANCE
     Route: 048
     Dates: start: 20130827
  17. LISINOPRIL [Concomitant]
     Indication: HYPERTENSION
     Route: 048
     Dates: start: 20130703
  18. ZOLADEX                            /00732101/ [Concomitant]
     Indication: PROSTATE CANCER
     Dosage: 10.8 MG, 1 IN 3 M
     Route: 030
     Dates: start: 2008
  19. ZYTIGA [Concomitant]
     Indication: PROSTATE CANCER
     Route: 048
     Dates: start: 20130408
  20. PREDNISONE [Concomitant]
     Indication: PROSTATE CANCER
     Route: 048
     Dates: start: 20130401
  21. FUROSEMIDE [Concomitant]
     Indication: PRODUCT USED FOR UNKNOWN INDICATION

REACTIONS (2)
  - Death [Fatal]
  - Cardiac failure congestive [Recovered/Resolved]
